FAERS Safety Report 6219370-7 (Version None)
Quarter: 2009Q2

REPORT INFORMATION
  Report Type: 
  Country: None (occurrence: None)
  Receive Date: 20090605
  Receipt Date: 20090605
  Transmission Date: 20091009
  Serious: No
  Sender: FDA-Public Use
  Company Number: None

PATIENT
  Sex: Male

DRUGS (1)
  1. CYCLOBENZAPRINE [Suspect]
     Indication: NERVE COMPRESSION
     Dosage: 1-2 TABS DAILY AT NIGHT PO
     Route: 048
     Dates: start: 20010201, end: 20090201

REACTIONS (5)
  - CONSTIPATION [None]
  - MUSCLE TWITCHING [None]
  - MUSCULAR WEAKNESS [None]
  - URINARY TRACT DISORDER [None]
  - VISUAL IMPAIRMENT [None]
